FAERS Safety Report 6554170-X (Version None)
Quarter: 2010Q1

REPORT INFORMATION
  Report Type: 
  Country: None (occurrence: None)
  Receive Date: 20100122
  Receipt Date: 20100112
  Transmission Date: 20100710
  Serious: Yes (Other)
  Sender: FDA-Public Use
  Company Number: DSA_42341_2010

PATIENT
  Sex: Male

DRUGS (1)
  1. DILTIAZEM HYDROCHLORIDE [Suspect]
     Indication: DRUG USE FOR UNKNOWN INDICATION

REACTIONS (2)
  - BLOOD PRESSURE INCREASED [None]
  - PRODUCT SUBSTITUTION ISSUE [None]
